FAERS Safety Report 7661665-4 (Version None)
Quarter: 2011Q3

REPORT INFORMATION
  Report Type: 
  Country: None (occurrence: None)
  Receive Date: 20110805
  Receipt Date: 20101117
  Transmission Date: 20111222
  Serious: No
  Sender: FDA-Public Use
  Company Number: US-ABBOTT-10P-163-0686174-00

PATIENT
  Sex: Male

DRUGS (2)
  1. NIASPAN [Suspect]
     Indication: DYSLIPIDAEMIA
     Dosage: 500MG DAILY AFTER EVENING MEAL
     Route: 048
     Dates: start: 20101116
  2. ASPIRIN [Concomitant]
     Indication: PRODUCT USED FOR UNKNOWN INDICATION
     Dosage: 4 TABLETS PRIOR TO DOSE OF NIASPAN

REACTIONS (3)
  - FLUSHING [None]
  - FEELING HOT [None]
  - SKIN BURNING SENSATION [None]
